FAERS Safety Report 15046504 (Version 4)
Quarter: 2018Q4

REPORT INFORMATION
  Report Type: Other
  Country: GB (occurrence: GB)
  Receive Date: 20180621
  Receipt Date: 20181102
  Transmission Date: 20190204
  Serious: Yes (Other)
  Sender: FDA-Public Use
  Company Number: GB-BIODELIVERY SCIENCES INTERNATIONAL-2018BDSI0315

PATIENT
  Age: 54 Year
  Sex: Female

DRUGS (5)
  1. SULPHAN BLUE [Suspect]
     Active Substance: SULFAN BLUE
     Indication: BIOPSY LYMPH GLAND
  2. FENTANYL CITRATE. [Suspect]
     Active Substance: FENTANYL CITRATE
     Indication: INDUCTION OF ANAESTHESIA
     Route: 065
  3. ONDANSETRON [Suspect]
     Active Substance: ONDANSETRON
     Indication: INDUCTION OF ANAESTHESIA
  4. PROPOFOL. [Suspect]
     Active Substance: PROPOFOL
     Indication: INDUCTION OF ANAESTHESIA
  5. PARACETAMOL [Suspect]
     Active Substance: ACETAMINOPHEN
     Indication: INDUCTION OF ANAESTHESIA

REACTIONS (6)
  - Flushing [Unknown]
  - Bronchospasm [Unknown]
  - Tryptase increased [Recovering/Resolving]
  - Angioedema [Unknown]
  - Procedural hypotension [Recovered/Resolved]
  - Type I hypersensitivity [Unknown]
